FAERS Safety Report 7760250-3 (Version None)
Quarter: 2011Q3

REPORT INFORMATION
  Report Type: 
  Country: None (occurrence: None)
  Receive Date: 20110919
  Receipt Date: 20110804
  Transmission Date: 20111222
  Serious: Yes (Hospitalization)
  Sender: FDA-Public Use
  Company Number: DE-GLAXOSMITHKLINE-B0739059A

PATIENT
  Sex: Female
  Weight: 84 kg

DRUGS (3)
  1. DOXORUBICIN HCL [Suspect]
     Indication: BREAST CANCER
     Dosage: 112.2MG EVERY 3 WEEKS
     Route: 042
     Dates: start: 20110719
  2. LAPATINIB [Suspect]
     Indication: BREAST CANCER
     Dosage: 1250MG PER DAY
     Route: 048
     Dates: start: 20110719
  3. TAXOL [Suspect]
     Indication: BREAST CANCER
     Dosage: 327.25MG EVERY 3 WEEKS
     Route: 042
     Dates: start: 20110719

REACTIONS (3)
  - DIARRHOEA [None]
  - RENAL FAILURE ACUTE [None]
  - DEHYDRATION [None]
